FAERS Safety Report 13393243 (Version 1)
Quarter: 2017Q1

REPORT INFORMATION
  Report Type: Spontaneous
  Country: US (occurrence: US)
  Receive Date: 20170331
  Receipt Date: 20170331
  Transmission Date: 20170429
  Serious: Yes (Other)
  Sender: FDA-Public Use
  Company Number: US-NOVOPROD-538082

PATIENT
  Sex: Female

DRUGS (8)
  1. NOVOLIN R [Suspect]
     Active Substance: INSULIN HUMAN
     Dosage: DOSE DECREASED
     Route: 058
     Dates: start: 201703
  2. HUMULIN R [Suspect]
     Active Substance: INSULIN HUMAN
     Dosage: DOSE DECREASED
     Route: 058
     Dates: start: 201703
  3. NOVOLIN R [Suspect]
     Active Substance: INSULIN HUMAN
     Indication: TYPE 2 DIABETES MELLITUS
     Dosage: 10 OR 20 UNITS AT MEALTIME ONLY IF BLOOD SUGARS WERE ABOVE 120MG/DL
     Route: 058
     Dates: end: 201703
  4. TRESIBA FLEXTOUCH U200 [Suspect]
     Active Substance: INSULIN DEGLUDEC
     Indication: TYPE 2 DIABETES MELLITUS
     Dosage: 110 U, QD
     Route: 058
     Dates: start: 201605, end: 201703
  5. HUMULIN R [Suspect]
     Active Substance: INSULIN HUMAN
     Indication: TYPE 2 DIABETES MELLITUS
     Dosage: 10 OR 20 UNITS AT MEALTIME ONLY IF BLOOD SUGARS WERE ABOVE 120MG/DL
     Route: 058
     Dates: end: 201703
  6. METFORMIN [Concomitant]
     Active Substance: METFORMIN HYDROCHLORIDE
     Indication: TYPE 2 DIABETES MELLITUS
     Dosage: UNKNOWN
  7. TRESIBA FLEXTOUCH U200 [Suspect]
     Active Substance: INSULIN DEGLUDEC
     Dosage: DOSE DECREASED
     Route: 058
     Dates: start: 201703
  8. VICTOZA [Suspect]
     Active Substance: LIRAGLUTIDE
     Indication: TYPE 2 DIABETES MELLITUS
     Dosage: 1.8 MG, QD
     Route: 058

REACTIONS (3)
  - Road traffic accident [Unknown]
  - Blood potassium increased [Unknown]
  - Hypoglycaemic unconsciousness [Recovered/Resolved]

NARRATIVE: CASE EVENT DATE: 20170318
